FAERS Safety Report 4698577-4 (Version None)
Quarter: 2005Q2

REPORT INFORMATION
  Report Type: 
  Country: None (occurrence: None)
  Receive Date: 20050622
  Receipt Date: 20050609
  Transmission Date: 20051028
  Serious: Yes (Hospitalization)
  Sender: FDA-Public Use
  Company Number: 2005SP001123

PATIENT
  Age: 35 Year
  Sex: Female

DRUGS (4)
  1. LUNESTA [Suspect]
     Dosage: 1X; ORAL
     Route: 048
     Dates: start: 20050609, end: 20050609
  2. XANAX [Suspect]
     Dosage: 1X; ORAL
     Route: 048
     Dates: start: 20050609, end: 20050609
  3. MELATONIN [Suspect]
     Dosage: 1X; ORAL
     Route: 048
     Dates: start: 20050609, end: 20050609
  4. ALCOHOL [Suspect]
     Dosage: 1X
     Dates: start: 20050609, end: 20050609

REACTIONS (2)
  - OVERDOSE [None]
  - SOMNOLENCE [None]
